FAERS Safety Report 4917907-9 (Version None)
Quarter: 2006Q1

REPORT INFORMATION
  Report Type: 
  Country: None (occurrence: None)
  Receive Date: 20060215
  Receipt Date: 20060206
  Transmission Date: 20060701
  Serious: Yes (Other)
  Sender: FDA-Public Use
  Company Number: 2004-04-1693

PATIENT
  Age: 44 Year
  Sex: Male
  Weight: 70 kg

DRUGS (8)
  1. INTRON A [Suspect]
     Indication: HEPATITIS C
     Dosage: SEE IMAGE
     Route: 030
     Dates: start: 20030224, end: 20030322
  2. INTRON A [Suspect]
     Indication: HEPATITIS C
     Dosage: SEE IMAGE
     Route: 030
     Dates: start: 20030324, end: 20030810
  3. INTRON A [Suspect]
     Indication: HEPATITIS C
     Dosage: SEE IMAGE
     Route: 030
     Dates: start: 20030224, end: 20040423
  4. INTRON A [Suspect]
     Indication: HEPATITIS C
     Dosage: SEE IMAGE
     Route: 030
     Dates: start: 20031001, end: 20040423
  5. REBETOL [Suspect]
     Indication: HEPATITIS C
     Dosage: 800 MG QD ORAL
     Route: 048
     Dates: start: 20030224, end: 20030811
  6. GASTER [Concomitant]
  7. MARZULENE S [Concomitant]
  8. LOXONIN [Concomitant]

REACTIONS (5)
  - ANAEMIA [None]
  - BIOPSY LIVER ABNORMAL [None]
  - DYSGEUSIA [None]
  - PLATELET COUNT DECREASED [None]
  - PSORIASIS [None]
